FAERS Safety Report 6830986-7 (Version None)
Quarter: 2010Q2

REPORT INFORMATION
  Report Type: 
  Country: None (occurrence: None)
  Receive Date: 20100520
  Receipt Date: 20090521
  Transmission Date: 20101027
  Serious: Yes (Other)
  Sender: FDA-Public Use
  Company Number: 2009218058

PATIENT
  Age: 81 Year
  Sex: Female
  Weight: 82 kg

DRUGS (6)
  1. PROVERA [Suspect]
     Indication: HORMONE REPLACEMENT THERAPY
     Dosage: ORAL
     Route: 048
     Dates: start: 19840101, end: 20021201
  2. PREMARIN [Suspect]
     Indication: HORMONE REPLACEMENT THERAPY
     Dates: start: 19840101, end: 20021201
  3. TOPROL-XL [Concomitant]
  4. LASIX [Concomitant]
  5. THYROID TAB [Concomitant]
  6. POTASSIUM (POTASSIUM) [Concomitant]

REACTIONS (1)
  - BREAST CANCER FEMALE [None]
